FAERS Safety Report 7464064-3 (Version None)
Quarter: 2011Q2

REPORT INFORMATION
  Report Type: 
  Country: None (occurrence: None)
  Receive Date: 20110506
  Receipt Date: 20110411
  Transmission Date: 20111010
  Serious: Yes (Other)
  Sender: FDA-Public Use
  Company Number: PHHY2011BR36103

PATIENT
  Sex: Female

DRUGS (2)
  1. EXFORGE HCT [Suspect]
     Indication: HYPERTENSION
     Dosage: 1 DF (160/12.5/5 MG) DAILY
     Route: 048
  2. EXFORGE HCT [Suspect]
     Dosage: 0.5 DF, BID
     Route: 048

REACTIONS (7)
  - WRONG TECHNIQUE IN DRUG USAGE PROCESS [None]
  - DYSGEUSIA [None]
  - BLOOD PRESSURE INCREASED [None]
  - COUGH [None]
  - PARAESTHESIA [None]
  - HEADACHE [None]
  - BACK PAIN [None]
